FAERS Safety Report 4708668-7 (Version None)
Quarter: 2005Q3

REPORT INFORMATION
  Report Type: 
  Country: None (occurrence: None)
  Receive Date: 20050705
  Receipt Date: 20050702
  Transmission Date: 20060218
  Serious: No
  Sender: FDA-Public Use
  Company Number: 11670

PATIENT
  Age: 56 Year
  Sex: Male

DRUGS (1)
  1. METHOTREXATE [Suspect]
     Dosage: 5.2 G ONCE IV
     Route: 042

REACTIONS (4)
  - HAEMODIALYSIS [None]
  - NEPHROPATHY TOXIC [None]
  - OVERDOSE [None]
  - RENAL FAILURE ACUTE [None]
